FAERS Safety Report 7042555-7 (Version None)
Quarter: 2010Q4

REPORT INFORMATION
  Report Type: 
  Country: None (occurrence: None)
  Receive Date: 20101013
  Receipt Date: 20100216
  Transmission Date: 20110411
  Serious: No
  Sender: FDA-Public Use
  Company Number: US-ASTRAZENECA-2010SE06851

PATIENT
  Sex: Male

DRUGS (5)
  1. SYMBICORT [Suspect]
     Indication: ASTHMA
     Dosage: 160/4.5, 2 PUFFS BID
     Route: 055
  2. CHANTIX [Concomitant]
  3. LISINOPRIL [Concomitant]
  4. PROAIR HFA [Concomitant]
  5. ASPIRIN [Concomitant]

REACTIONS (1)
  - PHYSICAL EXAMINATION ABNORMAL [None]
